FAERS Safety Report 5676168-6 (Version None)
Quarter: 2008Q1

REPORT INFORMATION
  Report Type: 
  Country: None (occurrence: None)
  Receive Date: 20080321
  Receipt Date: 20080313
  Transmission Date: 20080703
  Serious: Yes (Hospitalization)
  Sender: FDA-Public Use
  Company Number: NL-BAYER-200712155GDS

PATIENT
  Age: 56 Year
  Sex: Female

DRUGS (4)
  1. NEXAVAR [Suspect]
     Indication: METASTATIC RENAL CELL CARCINOMA
     Route: 048
     Dates: start: 20080101
  2. NEXAVAR [Suspect]
     Route: 065
     Dates: start: 20070313, end: 20070408
  3. NEXAVAR [Suspect]
     Dosage: UNIT DOSE: 200 MG
     Route: 065
     Dates: start: 20070507
  4. NEXAVAR [Suspect]
     Dosage: TOTAL DAILY DOSE: 800 MG
     Route: 065
     Dates: start: 20070401, end: 20070506

REACTIONS (15)
  - ABDOMINAL PAIN [None]
  - ACNE [None]
  - ALOPECIA [None]
  - DEPRESSION [None]
  - DIARRHOEA [None]
  - DYSPNOEA [None]
  - ERYTHEMA [None]
  - EYE SWELLING [None]
  - FATIGUE [None]
  - FLUID RETENTION [None]
  - GLOSSODYNIA [None]
  - ORAL PAIN [None]
  - PRURITUS [None]
  - RASH [None]
  - RHINALGIA [None]
